FAERS Safety Report 6534068-3 (Version None)
Quarter: 2009Q4

REPORT INFORMATION
  Report Type: 
  Country: None (occurrence: None)
  Receive Date: 20091214
  Receipt Date: 20081209
  Transmission Date: 20100525
  Serious: Yes (Other)
  Sender: FDA-Public Use
  Company Number: 588032

PATIENT
  Age: 51 Year
  Sex: Male
  Weight: 93 kg

DRUGS (3)
  1. PEGASYS [Suspect]
     Indication: HEPATITIS C
     Dosage: 180 UG
     Route: 058
     Dates: start: 20080101, end: 20080702
  2. COPEGUS [Suspect]
     Indication: HEPATITIS C
     Dosage: 3 PER DAY
     Route: 048
     Dates: start: 20080101, end: 20080702
  3. ANALGESIC NOS (ANALGESIC NOS) [Concomitant]

REACTIONS (9)
  - HAEMATEMESIS [None]
  - MALAISE [None]
  - PLATELET COUNT DECREASED [None]
  - PSORIASIS [None]
  - THERAPEUTIC PRODUCT INEFFECTIVE [None]
  - VIRAL LOAD INCREASED [None]
  - VOMITING [None]
  - WEIGHT DECREASED [None]
  - WHITE BLOOD CELL COUNT DECREASED [None]
